FAERS Safety Report 4977446-6 (Version None)
Quarter: 2006Q2

REPORT INFORMATION
  Report Type: 
  Country: None (occurrence: None)
  Receive Date: 20060413
  Receipt Date: 20060315
  Transmission Date: 20061013
  Serious: Yes (Life-Threatening)
  Sender: FDA-Public Use
  Company Number: 2006BI005275

PATIENT
  Age: 59 Year
  Sex: Female
  Weight: 82 kg

DRUGS (6)
  1. ZEVALIN [Suspect]
     Indication: BONE MARROW CONDITIONING REGIMEN
     Dosage: 0.4 MCI/KG;1X;IV
     Route: 042
     Dates: start: 20060216, end: 20060216
  2. RITUXAN [Concomitant]
  3. BCNU [Concomitant]
  4. ETOPOSIDE [Concomitant]
  5. ARACYTINE [Concomitant]
  6. MELPHALAN [Concomitant]

REACTIONS (4)
  - MUCOSAL INFLAMMATION [None]
  - RESPIRATORY FAILURE [None]
  - SKIN TOXICITY [None]
  - STEM CELL TRANSPLANT [None]
